FAERS Safety Report 6673153-2 (Version None)
Quarter: 2010Q2

REPORT INFORMATION
  Report Type: 
  Country: None (occurrence: None)
  Receive Date: 20100408
  Receipt Date: 20100216
  Transmission Date: 20101027
  Serious: Yes (Death)
  Sender: FDA-Public Use
  Company Number: FR-PFIZER INC-2010043326

PATIENT
  Age: 43 Year
  Sex: Male

DRUGS (6)
  1. VIAGRA [Suspect]
     Indication: ERECTILE DYSFUNCTION
     Dosage: 25 MG, UNK
  2. VERAPAMIL [Interacting]
     Indication: CARDIOVASCULAR DISORDER
  3. TRIMETAZIDINE [Concomitant]
  4. YOHIMBINE [Concomitant]
  5. BROMAZEPAM [Concomitant]
  6. TRINITRINE [Concomitant]

REACTIONS (4)
  - AORTIC ARTERIOSCLEROSIS [None]
  - ARTERIOSCLEROSIS CORONARY ARTERY [None]
  - CARDIOMEGALY [None]
  - DRUG INTERACTION [None]
